FAERS Safety Report 22651898 (Version 2)
Quarter: 2024Q2

REPORT INFORMATION
  Report Type: Spontaneous
  Country: CA (occurrence: CA)
  Receive Date: 20230628
  Receipt Date: 20240514
  Transmission Date: 20240716
  Serious: Yes (Other)
  Sender: FDA-Public Use
  Company Number: CA-PFIZER INC-202200700384

PATIENT
  Age: 30 Year
  Sex: Female

DRUGS (1)
  1. IBRANCE [Suspect]
     Active Substance: PALBOCICLIB
     Indication: Breast cancer metastatic
     Dosage: 100 MG, 1X/DAY X 3/52 ON THEN 1/52 OFF + REPEAT
     Route: 048
     Dates: start: 20210308

REACTIONS (4)
  - Back injury [Recovered/Resolved]
  - Intentional dose omission [Unknown]
  - Loss of personal independence in daily activities [Unknown]
  - Illness [Unknown]
